FAERS Safety Report 9226971 (Version 2)
Quarter: 2013Q2

REPORT INFORMATION
  Report Type: Spontaneous
  Country: US (occurrence: None)
  Receive Date: 20130410
  Receipt Date: 20130515
  Transmission Date: 20140414
  Serious: Yes (Disabling)
  Sender: FDA-Public Use
  Company Number: JPI-P-030956

PATIENT
  Age: 21 Year
  Sex: Female
  Weight: 68.49 kg

DRUGS (6)
  1. XYREM [Suspect]
     Indication: NARCOLEPSY
     Dosage: (2.25 GM, 2 IN 1 D)
     Route: 048
     Dates: start: 20120329
  2. CLONIDINE [Concomitant]
  3. DULOXETINE [Concomitant]
  4. LAMOTRIGINE [Concomitant]
  5. RANITIDINE [Concomitant]
  6. DROSPIREONE/ETHINYL ESTRADIOL [Concomitant]

REACTIONS (1)
  - Unevaluable event [None]
